FAERS Safety Report 11636772 (Version 1)
Quarter: 2015Q4

REPORT INFORMATION
  Report Type: Spontaneous
  Country: GB (occurrence: GB)
  Receive Date: 20151016
  Receipt Date: 20151016
  Transmission Date: 20160304
  Serious: Yes (Hospitalization)
  Sender: FDA-Public Use
  Company Number: GB-PFIZER INC-2015333685

PATIENT
  Age: 24 Year
  Sex: Female

DRUGS (4)
  1. BLEOMYCIN [Suspect]
     Active Substance: BLEOMYCIN SULFATE
     Dosage: 18000 IU, UNK
     Route: 042
     Dates: start: 20150908
  2. VINBLASTINE [Suspect]
     Active Substance: VINBLASTINE
     Dosage: 10 MG, UNK
     Route: 042
     Dates: start: 20150908
  3. DACARBAZINE. [Suspect]
     Active Substance: DACARBAZINE
     Dosage: 670 MG, UNK
     Route: 042
     Dates: start: 20150908
  4. DOXORUBICIN [Suspect]
     Active Substance: DOXORUBICIN
     Dosage: 44 MG, UNK (50MG/25ML)
     Route: 042
     Dates: start: 20150908

REACTIONS (3)
  - Nausea [Recovering/Resolving]
  - Gastrointestinal disorder [Unknown]
  - Abdominal pain [Recovering/Resolving]

NARRATIVE: CASE EVENT DATE: 20150921
